FAERS Safety Report 4897489-0 (Version None)
Quarter: 2005Q4

REPORT INFORMATION
  Report Type: 
  Country: None (occurrence: None)
  Receive Date: 20051223
  Receipt Date: 20050916
  Transmission Date: 20060501
  Serious: No
  Sender: FDA-Public Use
  Company Number: 05P-163-0311182-00

PATIENT
  Age: 43 Year
  Sex: Female
  Weight: 90.7194 kg

DRUGS (15)
  1. HUMIRA [Suspect]
     Indication: RHEUMATOID ARTHRITIS
     Dosage: 40 MG, 1 IN 2 WK, SUBCUTANEOUS
     Route: 058
     Dates: start: 20050601
  2. CELECOXIB [Concomitant]
  3. HYDROXYCHLOROQUINE SULFATE [Concomitant]
  4. FEXOFENADINE HYDROCHLORIDE [Concomitant]
  5. ATORVASTATIN CALCIUM [Concomitant]
  6. OMEPRAZOLE [Concomitant]
  7. ALLERGY INJECTION [Concomitant]
  8. VESICARE [Concomitant]
  9. FOLIC ACID [Concomitant]
  10. LISINOPRIL [Concomitant]
  11. ORTHO TRI-CYCLEN [Concomitant]
  12. AZMACORT [Concomitant]
  13. FLUTICASONE PROPIONATE [Concomitant]
  14. METHOTREXATE [Concomitant]
  15. LEFLUNOMIDE [Concomitant]

REACTIONS (1)
  - PROCEDURAL COMPLICATION [None]
